FAERS Safety Report 6297762-8 (Version None)
Quarter: 2009Q3

REPORT INFORMATION
  Report Type: 
  Country: None (occurrence: None)
  Receive Date: 20090804
  Receipt Date: 20090804
  Transmission Date: 20100115
  Serious: No
  Sender: FDA-Public Use
  Company Number: None

PATIENT
  Sex: Female
  Weight: 68.2 kg

DRUGS (1)
  1. BONIVA [Suspect]
     Indication: RESORPTION BONE INCREASED
     Dosage: 150 MG. MONTHLY BI-MOUTH
     Route: 048
     Dates: start: 20061101, end: 20090401

REACTIONS (1)
  - TOOTHACHE [None]
